FAERS Safety Report 8433899-2 (Version None)
Quarter: 2012Q2

REPORT INFORMATION
  Report Type: 
  Country: None (occurrence: None)
  Receive Date: 20120323
  Receipt Date: 20110622
  Transmission Date: 20120825
  Serious: Yes (Other)
  Sender: FDA-Public Use
  Company Number: 163-21880-11062952

PATIENT
  Age: 72 Year
  Sex: Female
  Weight: 90.3565 kg

DRUGS (6)
  1. REVLIMID [Suspect]
     Indication: MYELODYSPLASTIC SYNDROME
     Dosage: 5 MG, 1 IN 1 D, PO, 10 MG, 1 IN 1 D, PO
     Route: 048
     Dates: start: 20081101, end: 20110101
  2. REVLIMID [Suspect]
     Indication: MYELODYSPLASTIC SYNDROME
     Dosage: 5 MG, 1 IN 1 D, PO, 10 MG, 1 IN 1 D, PO
     Route: 048
     Dates: start: 20110121, end: 20110617
  3. DIAVAN (DIAVAN)(UNKNOWN) [Concomitant]
  4. ACIPHEX (RABEPRAZOLE SODIUM)(UNKNOWN) [Concomitant]
  5. EFFEXOR [Concomitant]
  6. LISINOPRIL [Concomitant]

REACTIONS (2)
  - MYELODYSPLASTIC SYNDROME TRANSFORMATION [None]
  - ACUTE MYELOID LEUKAEMIA [None]
